FAERS Safety Report 9310372 (Version 2)
Quarter: 2013Q3

REPORT INFORMATION
  Report Type: Spontaneous
  Country: US (occurrence: US)
  Receive Date: 20130527
  Receipt Date: 20130716
  Transmission Date: 20140515
  Serious: Yes (Life-Threatening, Disabling)
  Sender: FDA-Public Use
  Company Number: US-BRISTOL-MYERS SQUIBB COMPANY-18921353

PATIENT
  Age: 71 Year
  Sex: Male

DRUGS (11)
  1. BYETTA [Suspect]
     Indication: TYPE 2 DIABETES MELLITUS
     Dosage: FREQUENCY-HALF AN HOUR BEFORE BREAK FAST AND SUPPER?LAST DOSE-AUG12
     Route: 058
     Dates: start: 200612, end: 201208
  2. VICTOZA [Suspect]
     Dates: start: 201208, end: 201305
  3. GLUCOPHAGE [Concomitant]
  4. GLUCOTROL XL [Concomitant]
  5. ACTOS [Concomitant]
  6. ZOCOR [Concomitant]
  7. NEURONTIN [Concomitant]
  8. LISINOPRIL [Concomitant]
  9. HYTRIN [Concomitant]
  10. ACETYLSALICYLIC ACID [Concomitant]
  11. TOPRAL [Concomitant]

REACTIONS (1)
  - Pancreatic carcinoma [Not Recovered/Not Resolved]
